FAERS Safety Report 25658843 (Version 1)
Quarter: 2025Q3

REPORT INFORMATION
  Report Type: Spontaneous
  Country: EU (occurrence: EU)
  Receive Date: 20250808
  Receipt Date: 20250808
  Transmission Date: 20251021
  Serious: Yes (Other)
  Sender: ACCORD
  Company Number: None

PATIENT
  Age: 55 Year
  Sex: Female
  Weight: 63 kg

DRUGS (3)
  1. CARBOPLATIN [Suspect]
     Active Substance: CARBOPLATIN
     Indication: Ovarian cancer
     Dates: start: 20250528, end: 20250528
  2. GEMCITABINE [Suspect]
     Active Substance: GEMCITABINE
     Indication: Ovarian cancer
     Dates: start: 20250528, end: 20250528
  3. ONDANSETRON [Concomitant]
     Active Substance: ONDANSETRON

REACTIONS (2)
  - Cholestatic liver injury [Recovered/Resolved]
  - Condition aggravated [Recovering/Resolving]

NARRATIVE: CASE EVENT DATE: 20250602
